FAERS Safety Report 25258214 (Version 1)
Quarter: 2025Q2

REPORT INFORMATION
  Report Type: Report from Study
  Country: CO (occurrence: CO)
  Receive Date: 20250501
  Receipt Date: 20250501
  Transmission Date: 20250716
  Serious: Yes (Other)
  Sender: ROCHE
  Company Number: CO-002147023-PHHY2019CO119884

PATIENT
  Age: 52 Year
  Sex: Female
  Weight: 85.0 kg

DRUGS (19)
  1. XOLAIR [Suspect]
     Active Substance: OMALIZUMAB
     Indication: Asthma
     Dosage: 450 MG, QMO (150 MGX3)
     Route: 058
     Dates: start: 2017
  2. XOLAIR [Suspect]
     Active Substance: OMALIZUMAB
     Dosage: 450 MG, QMO
     Route: 058
     Dates: start: 20180518
  3. XOLAIR [Suspect]
     Active Substance: OMALIZUMAB
     Dosage: 150 MG, QMO
     Route: 058
     Dates: start: 20190222
  4. XOLAIR [Suspect]
     Active Substance: OMALIZUMAB
     Dosage: 150 MG, QMO
     Route: 058
     Dates: start: 20190319, end: 20190319
  5. XOLAIR [Suspect]
     Active Substance: OMALIZUMAB
     Dosage: 450 MG, QMO (150 MGX3)
     Route: 058
     Dates: start: 20190525
  6. XOLAIR [Suspect]
     Active Substance: OMALIZUMAB
     Dosage: 450 MG, QMO
     Route: 058
     Dates: start: 20190928
  7. XOLAIR [Suspect]
     Active Substance: OMALIZUMAB
     Dosage: 450 MG, QMO
     Route: 058
  8. XOLAIR [Suspect]
     Active Substance: OMALIZUMAB
     Route: 058
     Dates: start: 202108
  9. XOLAIR [Suspect]
     Active Substance: OMALIZUMAB
     Dosage: SOLUTION FOR INJECTION IN PRE-FILLED SYRINGE
     Route: 058
  10. XOLAIR [Suspect]
     Active Substance: OMALIZUMAB
     Dosage: SOLUTION FOR INJECTION IN PRE-FILLED SYRINGE
     Route: 058
     Dates: end: 20230324
  11. XOLAIR [Suspect]
     Active Substance: OMALIZUMAB
     Dosage: 2 DOSAGE FORM, (2 DOSES OF 150 MG/300 MG) QMO
     Route: 058
     Dates: start: 20230324, end: 20230324
  12. LOSARTAN [Suspect]
     Active Substance: LOSARTAN
     Indication: Product used for unknown indication
     Dosage: 50 MG, QD (EVERY 24 HOURS) (STARTED 2 YEARS AGO (DID NOT REMEMBER EXACT DATE))
     Route: 048
  13. ALBUTEROL [Concomitant]
     Active Substance: ALBUTEROL
     Indication: Product used for unknown indication
     Route: 065
  14. ALBUTEROL [Concomitant]
     Active Substance: ALBUTEROL
     Route: 065
  15. SYMBICORT [Concomitant]
     Active Substance: BUDESONIDE\FORMOTEROL FUMARATE DIHYDRATE
     Indication: Product used for unknown indication
     Route: 065
  16. OMEPRAZOLE [Concomitant]
     Active Substance: OMEPRAZOLE
     Indication: Product used for unknown indication
     Route: 065
  17. BETAMETHASONE [Concomitant]
     Active Substance: BETAMETHASONE
     Indication: Product used for unknown indication
     Route: 065
  18. PREDNISOLONE [Concomitant]
     Active Substance: PREDNISOLONE
     Indication: Product used for unknown indication
     Route: 065
  19. FLUTICASONE FUROATE [Concomitant]
     Active Substance: FLUTICASONE FUROATE
     Indication: Product used for unknown indication
     Dosage: UNK, Q12H

REACTIONS (37)
  - Asphyxia [Recovering/Resolving]
  - Asthmatic crisis [Not Recovered/Not Resolved]
  - Dry mouth [Recovered/Resolved]
  - Headache [Recovered/Resolved]
  - Neck pain [Not Recovered/Not Resolved]
  - Dysphonia [Not Recovered/Not Resolved]
  - Chest discomfort [Not Recovered/Not Resolved]
  - Dizziness [Recovered/Resolved]
  - Weight increased [Unknown]
  - Nasal congestion [Not Recovered/Not Resolved]
  - Rhinitis [Not Recovered/Not Resolved]
  - Cough [Recovering/Resolving]
  - Hypoxia [Not Recovered/Not Resolved]
  - Obstructive airways disorder [Not Recovered/Not Resolved]
  - Pain [Recovered/Resolved]
  - Pyrexia [Unknown]
  - Abdominal rigidity [Unknown]
  - Feeling hot [Not Recovered/Not Resolved]
  - Pain in extremity [Unknown]
  - Arthralgia [Unknown]
  - Bone pain [Unknown]
  - Abdominal distension [Unknown]
  - Product prescribing error [Unknown]
  - Incorrect dose administered [Unknown]
  - Influenza [Recovering/Resolving]
  - Asthma [Recovering/Resolving]
  - Application site hypersensitivity [Recovered/Resolved]
  - Sneezing [Recovering/Resolving]
  - Sinusitis [Recovering/Resolving]
  - Malaise [Unknown]
  - Weight decreased [Unknown]
  - Gait inability [Unknown]
  - Agitation [Unknown]
  - Umbilical hernia [Unknown]
  - General physical health deterioration [Unknown]
  - Respiratory disorder [Unknown]
  - Gastritis [Recovered/Resolved]

NARRATIVE: CASE EVENT DATE: 20170101
